FAERS Safety Report 4979680-8 (Version None)
Quarter: 2006Q1

REPORT INFORMATION
  Report Type: 
  Country: None (occurrence: None)
  Receive Date: 20060227
  Receipt Date: 20050107
  Transmission Date: 20060701
  Serious: Yes (Disabling)
  Sender: FDA-Public Use
  Company Number: WAES  0501USA00938

PATIENT
  Age: 65 Year
  Sex: Female
  Weight: 67.1324 kg

DRUGS (4)
  1. ZOCOR [Suspect]
     Indication: BLOOD CHOLESTEROL INCREASED
     Dosage: 10 MG DAILY PO
     Route: 048
     Dates: start: 20040201, end: 20041001
  2. DIAZIDE [Concomitant]
  3. FOSAMAX [Concomitant]
  4. LEVOXYL [Concomitant]

REACTIONS (1)
  - POLYMYALGIA RHEUMATICA [None]
